FAERS Safety Report 9802583 (Version 1)
Quarter: 2014Q1

REPORT INFORMATION
  Report Type: Spontaneous
  Country: US (occurrence: US)
  Receive Date: 20140108
  Receipt Date: 20140108
  Transmission Date: 20141002
  Serious: Yes (Hospitalization)
  Sender: FDA-Public Use
  Company Number: US-PFIZER INC-2014000911

PATIENT
  Sex: Female

DRUGS (1)
  1. INLYTA [Suspect]
     Dosage: 5 MG, 2X/DAY
     Route: 048
     Dates: start: 201312, end: 201312

REACTIONS (2)
  - Asthenia [Unknown]
  - Gait disturbance [Unknown]
